FAERS Safety Report 12433889 (Version 2)
Quarter: 2018Q4

REPORT INFORMATION
  Report Type: Spontaneous
  Country: US (occurrence: US)
  Receive Date: 20160603
  Receipt Date: 20181003
  Transmission Date: 20190204
  Serious: Yes (Other)
  Sender: FDA-Public Use
  Company Number: US-DSJP-DSU-2015-121255

PATIENT

DRUGS (2)
  1. BENICAR [Suspect]
     Active Substance: OLMESARTAN MEDOXOMIL
     Indication: BLOOD PRESSURE MEASUREMENT
     Dosage: 40 MG, QD
     Dates: start: 2002
  2. BENICAR HCT [Suspect]
     Active Substance: HYDROCHLOROTHIAZIDE\OLMESARTAN MEDOXOMIL
     Indication: PRODUCT USED FOR UNKNOWN INDICATION
     Dosage: 1 DF, QD
     Dates: end: 2015

REACTIONS (7)
  - Gastrooesophageal reflux disease [Unknown]
  - Peptic ulcer [Unknown]
  - Haemorrhoids [Unknown]
  - Hiatus hernia [Unknown]
  - Rectal haemorrhage [Recovering/Resolving]
  - Sprue-like enteropathy [Recovering/Resolving]
  - Large intestine polyp [Unknown]

NARRATIVE: CASE EVENT DATE: 20020601
